FAERS Safety Report 6851208-7 (Version None)
Quarter: 2010Q3

REPORT INFORMATION
  Report Type: 
  Country: None (occurrence: None)
  Receive Date: 20100716
  Receipt Date: 20100709
  Transmission Date: 20110219
  Serious: Yes (Hospitalization, Other)
  Sender: FDA-Public Use
  Company Number: DE-AMGEN-QUU407806

PATIENT
  Sex: Male

DRUGS (7)
  1. NPLATE [Suspect]
     Indication: IDIOPATHIC THROMBOCYTOPENIC PURPURA
     Route: 058
     Dates: start: 20100318
  2. MARCUMAR [Concomitant]
  3. FURORESE [Concomitant]
     Route: 048
  4. VOTUM [Concomitant]
     Route: 048
  5. OMEPRAL [Concomitant]
     Route: 048
  6. LYRICA [Concomitant]
  7. PRAMIPEXOLE DIHYDROCHLORIDE [Concomitant]

REACTIONS (9)
  - ATRIAL FIBRILLATION [None]
  - C-REACTIVE PROTEIN INCREASED [None]
  - CHILLS [None]
  - MYALGIA [None]
  - NAUSEA [None]
  - ORAL CANDIDIASIS [None]
  - ORAL HERPES [None]
  - PAIN IN EXTREMITY [None]
  - UPPER RESPIRATORY TRACT INFECTION [None]
